FAERS Safety Report 7439485-5 (Version None)
Quarter: 2011Q2

REPORT INFORMATION
  Report Type: 
  Country: None (occurrence: None)
  Receive Date: 20110427
  Receipt Date: 20110414
  Transmission Date: 20111010
  Serious: Yes (Other)
  Sender: FDA-Public Use
  Company Number: US-CELGENEUS-163-21880-11041924

PATIENT
  Sex: Male
  Weight: 67.646 kg

DRUGS (4)
  1. LASIX [Concomitant]
     Dosage: 40 MILLIGRAM
     Route: 065
  2. REVLIMID [Suspect]
     Dosage: 25 MILLIGRAM
     Route: 048
     Dates: start: 20070101
  3. NIFEREX [Concomitant]
     Route: 065
  4. DEXAMETHASONE [Concomitant]
     Route: 065

REACTIONS (5)
  - ASTHENIA [None]
  - VISUAL IMPAIRMENT [None]
  - DEAFNESS UNILATERAL [None]
  - HAEMOGLOBIN DECREASED [None]
  - OEDEMA PERIPHERAL [None]
